FAERS Safety Report 8005062-0 (Version None)
Quarter: 2011Q4

REPORT INFORMATION
  Report Type: 
  Country: None (occurrence: None)
  Receive Date: 20111123
  Receipt Date: 20111028
  Transmission Date: 20120403
  Serious: No
  Sender: FDA-Public Use
  Company Number: 336422

PATIENT
  Age: 72 Year
  Sex: Male

DRUGS (2)
  1. VICTOZA [Suspect]
     Indication: WEIGHT CONTROL
     Dosage: SUBCUTANEOUS
     Route: 058
  2. LYRICA [Concomitant]

REACTIONS (1)
  - NAUSEA [None]
